FAERS Safety Report 6607791-X (Version None)
Quarter: 2010Q1

REPORT INFORMATION
  Report Type: 
  Country: None (occurrence: None)
  Receive Date: 20100301
  Receipt Date: 20100222
  Transmission Date: 20100710
  Serious: Yes (Other)
  Sender: FDA-Public Use
  Company Number: GB-ASTRAZENECA-2010SE07797

PATIENT
  Age: 71 Year
  Sex: Male

DRUGS (3)
  1. PROPOFOL [Suspect]
     Indication: ANAESTHESIA
  2. ALFENTANIL [Suspect]
     Indication: ANAESTHESIA
     Route: 042
  3. ROCURONIUM BROMIDE [Suspect]
     Indication: ANAESTHESIA

REACTIONS (2)
  - CARDIO-RESPIRATORY ARREST [None]
  - GUILLAIN-BARRE SYNDROME [None]
